FAERS Safety Report 10207119 (Version 1)
Quarter: 2014Q2

REPORT INFORMATION
  Report Type: Spontaneous
  Country: US (occurrence: None)
  Receive Date: 20140527
  Receipt Date: 20140527
  Transmission Date: 20141212
  Serious: Yes (Hospitalization)
  Sender: FDA-Public Use
  Company Number: None

PATIENT
  Age: 45 Year
  Sex: Female

DRUGS (7)
  1. AMOXICILLIN [Suspect]
     Indication: TOOTHACHE
     Dosage: 7 DAYS.
     Dates: start: 20130116, end: 20130122
  2. CEFTRIAXONE [Suspect]
     Dates: start: 20130121, end: 20130127
  3. LEVAQUIN [Concomitant]
  4. AZITHROMYCIN [Concomitant]
  5. CEFTRIAXONE [Concomitant]
  6. FLUCONAZOLE [Concomitant]
  7. MONTELUKAST [Concomitant]

REACTIONS (8)
  - Cholestasis [None]
  - Hepatocellular injury [None]
  - Drug-induced liver injury [None]
  - Aspartate aminotransferase increased [None]
  - Alanine aminotransferase increased [None]
  - Blood alkaline phosphatase increased [None]
  - Blood bilirubin increased [None]
  - Condition aggravated [None]
